FAERS Safety Report 5308646-3 (Version None)
Quarter: 2007Q2

REPORT INFORMATION
  Report Type: 
  Country: None (occurrence: None)
  Receive Date: 20070426
  Receipt Date: 20070418
  Transmission Date: 20071010
  Serious: Yes (Disabling)
  Sender: FDA-Public Use
  Company Number: 2007SE01808

PATIENT
  Age: 17156 Day
  Sex: Female

DRUGS (2)
  1. SEROQUEL [Suspect]
     Indication: BIPOLAR DISORDER
     Route: 048
     Dates: start: 20051027
  2. RIMONABANT [Interacting]
     Indication: OVERWEIGHT
     Dates: end: 20061201

REACTIONS (4)
  - CONFUSIONAL STATE [None]
  - DRUG INTERACTION [None]
  - FEELING ABNORMAL [None]
  - SOMNOLENCE [None]
